FAERS Safety Report 22274246 (Version 1)
Quarter: 2023Q2

REPORT INFORMATION
  Report Type: Spontaneous
  Country: US (occurrence: US)
  Receive Date: 20230502
  Receipt Date: 20230502
  Transmission Date: 20230721
  Serious: Yes (Other)
  Sender: FDA-Public Use
  Company Number: US-AMNEAL PHARMACEUTICALS-2022-AMRX-02146

PATIENT
  Sex: Female
  Weight: 11.5 kg

DRUGS (2)
  1. VIGABATRIN [Suspect]
     Active Substance: VIGABATRIN
     Indication: Epilepsy
     Dosage: 400 MILLIGRAM, 2 /DAY
     Route: 048
  2. VIGABATRIN [Suspect]
     Active Substance: VIGABATRIN
     Dosage: 10 TO 14ML, BID, 1 PACKET IN 10ML WATER TAKE 10 ML(500MG) TWICE A DAY
     Route: 048
     Dates: start: 202209

REACTIONS (3)
  - Muscle spasms [Unknown]
  - Seizure [Unknown]
  - Condition aggravated [Unknown]
